FAERS Safety Report 7423118-8 (Version None)
Quarter: 2011Q2

REPORT INFORMATION
  Report Type: 
  Country: None (occurrence: None)
  Receive Date: 20110413
  Receipt Date: 20110413
  Transmission Date: 20111010
  Serious: Yes (Other)
  Sender: FDA-Public Use
  Company Number: None

PATIENT
  Age: 47 Year
  Sex: Male
  Weight: 102.0593 kg

DRUGS (1)
  1. CLONAZEPAM [Suspect]
     Indication: PANIC DISORDER
     Dosage: IMG 3 TIMES DAILY
     Dates: start: 20110408, end: 20110411

REACTIONS (3)
  - HAEMORRHAGE [None]
  - PANIC ATTACK [None]
  - ANXIETY [None]
